FAERS Safety Report 10956297 (Version 1)
Quarter: 2015Q1

REPORT INFORMATION
  Report Type: Spontaneous
  Country: US (occurrence: None)
  Receive Date: 20150325
  Receipt Date: 20150325
  Transmission Date: 20150721
  Serious: No
  Sender: FDA-Public Use
  Company Number: None

PATIENT
  Age: 50 Year
  Sex: Female

DRUGS (9)
  1. PROLIA [Suspect]
     Active Substance: DENOSUMAB
     Indication: SENILE OSTEOPOROSIS
     Dosage: 60 MG/ML SYRINGE EVERY 6 MONTHS SUBCUTANEOUS
     Route: 058
  2. CALCIUM [Concomitant]
     Active Substance: CALCIUM
  3. VITAMIN D [Concomitant]
     Active Substance: CHOLECALCIFEROL
  4. COZAAR [Concomitant]
     Active Substance: LOSARTAN POTASSIUM
  5. MYCARDIS [Concomitant]
  6. ACTONEL [Concomitant]
     Active Substance: RISEDRONATE SODIUM
  7. IMURAN [Concomitant]
     Active Substance: AZATHIOPRINE
  8. BENADRYL [Concomitant]
     Active Substance: DIPHENHYDRAMINE HYDROCHLORIDE
  9. GLUNETZA [Concomitant]

REACTIONS (1)
  - Tooth fracture [None]

NARRATIVE: CASE EVENT DATE: 20150324
